FAERS Safety Report 7158721-6 (Version None)
Quarter: 2010Q4

REPORT INFORMATION
  Report Type: 
  Country: None (occurrence: None)
  Receive Date: 20101214
  Receipt Date: 20101207
  Transmission Date: 20110411
  Serious: Yes (Hospitalization)
  Sender: FDA-Public Use
  Company Number: US-US-EMD SERONO, INC.-7031522

PATIENT
  Sex: Male

DRUGS (2)
  1. REBIF [Suspect]
     Indication: PRODUCT USED FOR UNKNOWN INDICATION
     Route: 058
     Dates: start: 20101006
  2. CIPRO [Suspect]
     Indication: LOCALISED INFECTION
     Dates: start: 20101201

REACTIONS (3)
  - FATIGUE [None]
  - LETHARGY [None]
  - LOCALISED INFECTION [None]
